FAERS Safety Report 26104588 (Version 1)
Quarter: 2025Q4

REPORT INFORMATION
  Report Type: Spontaneous
  Country: US (occurrence: US)
  Receive Date: 20251130
  Receipt Date: 20251130
  Transmission Date: 20260119
  Serious: Yes (Other)
  Sender: AMGEN
  Company Number: US-AMGEN-USASP2025235961

PATIENT
  Age: 75 Year
  Sex: Female

DRUGS (2)
  1. PREDNISONE [Suspect]
     Active Substance: PREDNISONE
     Indication: Rheumatoid arthritis
     Dosage: UNK
     Route: 065
  2. METHADONE [Concomitant]
     Active Substance: METHADONE HYDROCHLORIDE
     Indication: Lumbar spinal stenosis

REACTIONS (4)
  - Herpes zoster meningoencephalitis [Recovered/Resolved]
  - Varicella zoster virus infection [Recovered/Resolved]
  - Catatonia [Recovered/Resolved]
  - Urinary tract infection [Recovered/Resolved]
